FAERS Safety Report 7017029-X (Version None)
Quarter: 2010Q3

REPORT INFORMATION
  Report Type: 
  Country: None (occurrence: None)
  Receive Date: 20100927
  Receipt Date: 20100916
  Transmission Date: 20110219
  Serious: Yes (Other)
  Sender: FDA-Public Use
  Company Number: US-PFIZER INC-2010117734

PATIENT
  Sex: Female
  Weight: 83.9 kg

DRUGS (10)
  1. GEODON [Suspect]
     Indication: BIPOLAR DISORDER
     Dosage: 20 MG, 2X/DAY
     Dates: start: 20100910, end: 20100915
  2. XANAX [Concomitant]
     Indication: ANXIETY
     Dosage: UNK
     Route: 048
  3. COLACE [Concomitant]
     Indication: CONSTIPATION
     Dosage: UNK
  4. LEXAPRO [Concomitant]
     Indication: DEPRESSION
     Dosage: UNK
  5. NEURONTIN [Concomitant]
     Indication: PAIN
     Dosage: UNK
  6. CLARITIN [Concomitant]
     Indication: HYPERSENSITIVITY
     Dosage: UNK
  7. NICODERM [Concomitant]
     Indication: SMOKING CESSATION THERAPY
     Dosage: UNK
  8. TRILEPTAL [Concomitant]
     Indication: MOOD ALTERED
     Dosage: UNK
  9. WARFARIN SODIUM [Concomitant]
     Indication: PULMONARY EMBOLISM
     Dosage: UNK
  10. TYLENOL W/ CODEINE [Concomitant]
     Indication: PAIN
     Dosage: UNK
     Route: 048

REACTIONS (1)
  - GALACTORRHOEA [None]
